FAERS Safety Report 7594261-8 (Version None)
Quarter: 2011Q3

REPORT INFORMATION
  Report Type: 
  Country: None (occurrence: None)
  Receive Date: 20110706
  Receipt Date: 20110706
  Transmission Date: 20111222
  Serious: Yes (Hospitalization)
  Sender: FDA-Public Use
  Company Number: None

PATIENT
  Age: 57 Year
  Sex: Female
  Weight: 60.781 kg

DRUGS (1)
  1. GILENYA [Suspect]
     Indication: RHINOSCLEROMA
     Dosage: .5 MG.
     Route: 048
     Dates: start: 20110106, end: 20110621

REACTIONS (32)
  - URINARY TRACT INFECTION [None]
  - BLOOD DISORDER [None]
  - NUCLEAR MAGNETIC RESONANCE IMAGING BRAIN ABNORMAL [None]
  - TINNITUS [None]
  - SARCOIDOSIS [None]
  - VOMITING [None]
  - DIZZINESS [None]
  - CSF PROTEIN INCREASED [None]
  - NERVOUS SYSTEM DISORDER [None]
  - VISION BLURRED [None]
  - SPINAL OSTEOARTHRITIS [None]
  - HAEMORRHAGE [None]
  - GRANULOMA [None]
  - DIPLOPIA [None]
  - SINUSITIS [None]
  - NECK PAIN [None]
  - NASAL CONGESTION [None]
  - PYREXIA [None]
  - FATIGUE [None]
  - ASTHENIA [None]
  - BRONCHITIS [None]
  - MUSCULOSKELETAL STIFFNESS [None]
  - INTRACRANIAL HYPOTENSION [None]
  - HEADACHE [None]
  - FACIAL PAIN [None]
  - RHINITIS ALLERGIC [None]
  - WHITE BLOOD CELL COUNT DECREASED [None]
  - COLOUR BLINDNESS [None]
  - UPPER RESPIRATORY TRACT INFECTION [None]
  - SUBDURAL HAEMATOMA [None]
  - MIGRAINE [None]
  - NAUSEA [None]
